FAERS Safety Report 4340950-8 (Version None)
Quarter: 2004Q2

REPORT INFORMATION
  Report Type: 
  Country: None (occurrence: None)
  Receive Date: 20040413
  Receipt Date: 20040331
  Transmission Date: 20050107
  Serious: Yes (Disabling)
  Sender: FDA-Public Use
  Company Number: UK070889

PATIENT
  Age: 57 Year
  Sex: Male
  Weight: 75 kg

DRUGS (12)
  1. ARANESP [Suspect]
     Indication: RENAL FAILURE CHRONIC
     Dosage: 30 MCG, SC
     Route: 058
     Dates: start: 20021218, end: 20030501
  2. FUROSEMIDE [Concomitant]
  3. ATORVASTATIN [Concomitant]
  4. LISINOPRIL [Concomitant]
  5. LANSOPRAZOLE [Concomitant]
  6. NIFEDIPINE [Concomitant]
  7. CALCIUM ACETATE [Concomitant]
  8. CHLORPHENIRAMINE MALEATE [Concomitant]
  9. DOCUSATE SODIUM [Concomitant]
  10. ERYTHROPOIETIN HUMAN [Concomitant]
  11. GABAPENTIN [Concomitant]
  12. DICLOFENAC SODIUM [Concomitant]

REACTIONS (7)
  - FATIGUE [None]
  - FIBROSIS [None]
  - LETHARGY [None]
  - MOBILITY DECREASED [None]
  - MUSCULOSKELETAL STIFFNESS [None]
  - PAIN IN EXTREMITY [None]
  - SKIN DISORDER [None]
